FAERS Safety Report 8696559 (Version 2)
Quarter: 2012Q4

REPORT INFORMATION
  Report Type: 
  Country: US (occurrence: US)
  Receive Date: 20120801
  Receipt Date: 20121026
  Transmission Date: 20130627
  Serious: Yes (Other)
  Sender: FDA-Public Use
  Company Number: US-BAYER-2012-074013

PATIENT
  Age: 37 Year
  Sex: Female
  Weight: 95.24 kg

DRUGS (5)
  1. YAZ [Suspect]
     Indication: PREMENSTRUAL SYNDROME
     Dosage: UNK
     Dates: start: 2007
  2. YASMIN [Suspect]
     Indication: PREMENSTRUAL SYNDROME
     Dosage: UNK
     Dates: start: 2007
  3. OCELLA [Suspect]
     Indication: PREMENSTRUAL SYNDROME
     Dosage: UNK
     Dates: start: 2005
  4. SYNTHROID [Concomitant]
     Indication: HASHIMOTO^S THYROIDITIS
  5. WELLBUTRIN [Concomitant]

REACTIONS (11)
  - Gallbladder disorder [None]
  - General physical health deterioration [None]
  - Pain [None]
  - Injury [None]
  - Cholecystitis chronic [None]
  - Emotional distress [None]
  - Anxiety [None]
  - Pain [None]
  - Autoimmune thyroiditis [None]
  - Hysterotomy [None]
  - Coeliac disease [None]
